FAERS Safety Report 8053634-X (Version None)
Quarter: 2012Q1

REPORT INFORMATION
  Report Type: 
  Country: None (occurrence: None)
  Receive Date: 20120118
  Receipt Date: 20120113
  Transmission Date: 20120608
  Serious: Yes (Other)
  Sender: FDA-Public Use
  Company Number: CA-AMGEN-CANSP2011046530

PATIENT
  Age: 25 Year
  Sex: Female

DRUGS (2)
  1. ENBREL [Suspect]
     Indication: PSORIASIS
     Dosage: 50 MG, UNK
     Dates: start: 20090908
  2. ALESSE [Concomitant]
     Dosage: UNK UNK, QD

REACTIONS (3)
  - EPHELIDES [None]
  - CERVIX CARCINOMA [None]
  - MELANOCYTIC NAEVUS [None]
